FAERS Safety Report 4439643-8 (Version None)
Quarter: 2004Q3

REPORT INFORMATION
  Report Type: 
  Country: None (occurrence: None)
  Receive Date: 20040830
  Receipt Date: 20040106
  Transmission Date: 20050211
  Serious: Yes (Other)
  Sender: FDA-Public Use
  Company Number: PROG00204002911

PATIENT
  Sex: Female

DRUGS (3)
  1. PROMETRIUM [Suspect]
     Indication: ILL-DEFINED DISORDER
     Dosage: DAILY PO
     Route: 048
  2. OVRAL [Suspect]
     Indication: ORAL CONTRACEPTION
     Dosage: DAILY PO
     Route: 048
  3. OVCON-50 [Suspect]
     Indication: ORAL CONTRACEPTION
     Dosage: DAILY PO
     Route: 048

REACTIONS (4)
  - DIPLOPIA [None]
  - MENINGIOMA [None]
  - NEOPLASM PROGRESSION [None]
  - PROGESTERONE RECEPTOR ASSAY POSITIVE [None]
